FAERS Safety Report 11364717 (Version 1)
Quarter: 2015Q3

REPORT INFORMATION
  Report Type: Report from Study
  Country: BR (occurrence: BR)
  Receive Date: 20150811
  Receipt Date: 20150811
  Transmission Date: 20151125
  Serious: Yes (Death, Other)
  Sender: FDA-Public Use
  Company Number: BR-BAXALTA-2015BLT000836

PATIENT
  Age: 77 Year
  Sex: Female

DRUGS (2)
  1. FACTOR VIII INHIBITOR BYPASSING FRACTION UNSPECIFIED [Suspect]
     Active Substance: ANTI-INHIBITOR COAGULANT COMPLEX
     Indication: ACQUIRED HAEMOPHILIA
     Dosage: ON DEMAND TREATMENT
     Route: 065
     Dates: end: 201310
  2. FACTOR VIII INHIBITOR BYPASSING FRACTION UNSPECIFIED [Suspect]
     Active Substance: ANTI-INHIBITOR COAGULANT COMPLEX
     Indication: HAEMORRHAGE

REACTIONS (2)
  - Drug ineffective [Unknown]
  - Lung infection [Fatal]

NARRATIVE: CASE EVENT DATE: 201310
